FAERS Safety Report 14823092 (Version 1)
Quarter: 2018Q2

REPORT INFORMATION
  Report Type: Spontaneous
  Country: US (occurrence: US)
  Receive Date: 20180427
  Receipt Date: 20180427
  Transmission Date: 20180711
  Serious: Yes (Other)
  Sender: FDA-Public Use
  Company Number: US-PRINSTON PHARMACEUTICAL INC.-2018PRN00194

PATIENT
  Sex: Female
  Weight: 72.56 kg

DRUGS (2)
  1. LAMOTRIGINE (UNICHEM) [Concomitant]
  2. LEVETIRACETAM. [Suspect]
     Active Substance: LEVETIRACETAM
     Indication: SEIZURE
     Dosage: 500 MG, 3X/DAY
     Route: 048

REACTIONS (3)
  - Drug ineffective [Recovered/Resolved]
  - Seizure [Recovered/Resolved]
  - Inappropriate schedule of drug administration [Not Recovered/Not Resolved]

NARRATIVE: CASE EVENT DATE: 2018
